FAERS Safety Report 4660995-8 (Version None)
Quarter: 2005Q2

REPORT INFORMATION
  Report Type: 
  Country: None (occurrence: None)
  Receive Date: 20050511
  Receipt Date: 20050428
  Transmission Date: 20051028
  Serious: Yes (Hospitalization, Other)
  Sender: FDA-Public Use
  Company Number: 2005067414

PATIENT
  Age: 52 Year
  Sex: Female

DRUGS (2)
  1. BEXTRA [Suspect]
     Indication: OSTEOARTHRITIS
     Dosage: 20 MG (20 MG, 1 IN 1 D), ORAL
     Route: 048
     Dates: start: 20021119, end: 20050401
  2. SKELAXIN [Concomitant]

REACTIONS (8)
  - CELLULITIS [None]
  - INFLAMMATION [None]
  - NODULE [None]
  - POST PROCEDURAL COMPLICATION [None]
  - POSTOPERATIVE ABSCESS [None]
  - RASH PUSTULAR [None]
  - SUTURE LINE INFECTION [None]
  - SUTURE RELATED COMPLICATION [None]
